FAERS Safety Report 11713069 (Version 2)
Quarter: 2015Q4

REPORT INFORMATION
  Report Type: Spontaneous
  Country: US (occurrence: US)
  Receive Date: 20151109
  Receipt Date: 20151109
  Transmission Date: 20160304
  Serious: Yes (Other)
  Sender: FDA-Public Use
  Company Number: CHPA2015US013047

PATIENT
  Age: 69 Year
  Sex: Male

DRUGS (1)
  1. VOLTAREN [Suspect]
     Active Substance: DICLOFENAC SODIUM
     Indication: ARTHRITIS
     Dosage: LESS THAN A GRAM, QD
     Route: 061
     Dates: start: 2008

REACTIONS (5)
  - Inappropriate schedule of drug administration [Unknown]
  - Middle insomnia [Not Recovered/Not Resolved]
  - Drug administered at inappropriate site [Unknown]
  - Underdose [Unknown]
  - Plasma cell myeloma [Recovered/Resolved]

NARRATIVE: CASE EVENT DATE: 2008
